FAERS Safety Report 25274033 (Version 1)
Quarter: 2025Q2

REPORT INFORMATION
  Report Type: Spontaneous
  Country: FR (occurrence: FR)
  Receive Date: 20250506
  Receipt Date: 20250506
  Transmission Date: 20250717
  Serious: Yes (Death, Other)
  Sender: BRISTOL-MYERS SQUIBB COMPANY
  Company Number: FR-BRISTOL-MYERS SQUIBB COMPANY-2025-064905

PATIENT
  Age: 77 Year
  Sex: Male
  Weight: 85 kg

DRUGS (2)
  1. OPDIVO [Suspect]
     Active Substance: NIVOLUMAB
     Indication: Pleural mesothelioma malignant
     Dosage: 8 DOSE RECEIVED BEFORE DISCONTINUATION
     Route: 042
     Dates: start: 20221118, end: 20230414
  2. YERVOY [Suspect]
     Active Substance: IPILIMUMAB
     Indication: Pleural mesothelioma malignant
     Dosage: 4 DOSE RECEIVED BEFORE DISCONTINUATION
     Route: 042
     Dates: start: 20221118, end: 20230414

REACTIONS (1)
  - Death [Fatal]

NARRATIVE: CASE EVENT DATE: 20230521
